FAERS Safety Report 4616040-3 (Version None)
Quarter: 2005Q1

REPORT INFORMATION
  Report Type: 
  Country: None (occurrence: None)
  Receive Date: 20050321
  Receipt Date: 20050308
  Transmission Date: 20050727
  Serious: Yes (Hospitalization)
  Sender: FDA-Public Use
  Company Number: 2005-BP-03675RO

PATIENT
  Sex: Male

DRUGS (1)
  1. METHADONE (METHADONE) [Suspect]
     Indication: DRUG WITHDRAWAL MAINTENANCE THERAPY
     Dosage: (1 IN 1 D), PO
     Route: 048

REACTIONS (16)
  - ABDOMINAL PAIN [None]
  - ABDOMINAL TENDERNESS [None]
  - ARTHRALGIA [None]
  - BLOOD IMMUNOGLOBULIN G INCREASED [None]
  - CHEST PAIN [None]
  - EXANTHEM [None]
  - MALAISE [None]
  - MYALGIA [None]
  - NAUSEA [None]
  - PETECHIAE [None]
  - PHARYNGOLARYNGEAL PAIN [None]
  - PROTEIN URINE PRESENT [None]
  - PURPURA [None]
  - RASH PRURITIC [None]
  - SKIN EXFOLIATION [None]
  - VOMITING [None]
